FAERS Safety Report 9604600 (Version 1)
Quarter: 2013Q4

REPORT INFORMATION
  Report Type: Spontaneous
  Country: US (occurrence: US)
  Receive Date: 20131008
  Receipt Date: 20131008
  Transmission Date: 20140711
  Serious: Yes (Other)
  Sender: FDA-Public Use
  Company Number: US-BAYER-2013-121025

PATIENT
  Sex: Female

DRUGS (1)
  1. MIRENA [Suspect]
     Dosage: 20 MCG/24HR, CONT
     Route: 015
     Dates: start: 200108, end: 20130823

REACTIONS (4)
  - Device dislocation [Recovered/Resolved]
  - Abdominal pain [None]
  - Feeling abnormal [None]
  - Menstruation delayed [None]
